FAERS Safety Report 5232480-6 (Version None)
Quarter: 2007Q1

REPORT INFORMATION
  Report Type: 
  Country: None (occurrence: None)
  Receive Date: 20061204
  Receipt Date: 20060727
  Transmission Date: 20070707
  Serious: Yes (Other)
  Sender: FDA-Public Use
  Company Number: BDI-008468

PATIENT
  Age: 60 Year
  Sex: Male

DRUGS (2)
  1. ISOVUE-128 [Suspect]
     Indication: COMPUTERISED TOMOGRAM HEAD
     Dosage: 80 ML ONCE IV
     Route: 042
     Dates: start: 20060727, end: 20060727
  2. ISOVUE-128 [Suspect]
     Indication: HEMIPARESIS
     Dosage: 80 ML ONCE IV
     Route: 042
     Dates: start: 20060727, end: 20060727

REACTIONS (1)
  - ANAPHYLACTOID REACTION [None]
